FAERS Safety Report 14903565 (Version 2)
Quarter: 2018Q3

REPORT INFORMATION
  Report Type: Spontaneous
  Country: US (occurrence: US)
  Receive Date: 20180516
  Receipt Date: 20180706
  Transmission Date: 20181010
  Serious: Yes (Death, Hospitalization, Other)
  Sender: FDA-Public Use
  Company Number: US-PFIZER INC-2018200849

PATIENT
  Age: 86 Year
  Sex: Male

DRUGS (5)
  1. BRILINTA [Concomitant]
     Active Substance: TICAGRELOR
     Indication: CORONARY ARTERY DISEASE
     Dosage: 90 MG, UNK
     Dates: start: 20180305
  2. METOPROLOL. [Concomitant]
     Active Substance: METOPROLOL
     Indication: CARDIAC DISORDER
     Dosage: 2.5 MG, DAILY (2.5 MG Q24 H)
     Dates: start: 20180305
  3. RAMIPRIL. [Concomitant]
     Active Substance: RAMIPRIL
     Indication: CARDIAC DISORDER
     Dosage: 2.5 MG, 1X/DAY
     Dates: start: 20180305
  4. LASIX [Concomitant]
     Active Substance: FUROSEMIDE
     Indication: CARDIAC FAILURE CONGESTIVE
     Dosage: 20 MG, UNK
     Dates: start: 20180305
  5. XELJANZ [Suspect]
     Active Substance: TOFACITINIB CITRATE
     Indication: RHEUMATOID ARTHRITIS
     Dosage: 5 MG, 2X/DAY
     Route: 048
     Dates: start: 201711, end: 201803

REACTIONS (5)
  - Sepsis [Fatal]
  - Cardiac failure congestive [Fatal]
  - Myocardial infarction [Fatal]
  - Arrhythmia [Fatal]
  - Disease progression [Fatal]

NARRATIVE: CASE EVENT DATE: 201803
